FAERS Safety Report 8785192 (Version 1)
Quarter: 2012Q4

REPORT INFORMATION
  Report Type: 
  Country: US (occurrence: US)
  Receive Date: 20120914
  Receipt Date: 20120914
  Transmission Date: 20130627
  Serious: No
  Sender: FDA-Public Use
  Company Number: US-ASTRAZENECA-2012SE61351

PATIENT

DRUGS (2)
  1. ARIMIDEX [Suspect]
     Indication: AROMATASE INHIBITION THERAPY
     Route: 048
  2. TESTOSTERONE [Suspect]
     Route: 065

REACTIONS (2)
  - Enzyme abnormality [Unknown]
  - Off label use [Unknown]
